FAERS Safety Report 7675066-6 (Version None)
Quarter: 2011Q3

REPORT INFORMATION
  Report Type: 
  Country: None (occurrence: None)
  Receive Date: 20110810
  Receipt Date: 20110804
  Transmission Date: 20111222
  Serious: Yes (Hospitalization, Disabling)
  Sender: FDA-Public Use
  Company Number: US-MERCK-1103USA01910

PATIENT
  Age: 61 Year
  Sex: Female

DRUGS (4)
  1. FOSAMAX [Suspect]
     Dosage: ^TAKE 1/2 OF A 70 MG TAB WEEKLY^
     Route: 048
     Dates: start: 20021022
  2. FOSAMAX [Suspect]
     Indication: OSTEOPOROSIS PROPHYLAXIS
     Route: 048
     Dates: start: 20000101, end: 20091001
  3. FOSAMAX [Suspect]
     Dosage: ^TAKE 1/2 OF A 70 MG TAB WEEKLY^
     Route: 048
     Dates: start: 20021022
  4. FOSAMAX [Suspect]
     Indication: OSTEOPOROSIS
     Route: 048
     Dates: start: 20000101, end: 20091001

REACTIONS (13)
  - MUSCULAR WEAKNESS [None]
  - HYPERLIPIDAEMIA [None]
  - INFECTION [None]
  - ASTHENIA [None]
  - BONE PAIN [None]
  - FEMUR FRACTURE [None]
  - BALANCE DISORDER [None]
  - DRUG ADMINISTRATION ERROR [None]
  - VITAMIN D DEFICIENCY [None]
  - GAIT DISTURBANCE [None]
  - OSTEOARTHRITIS [None]
  - LOW TURNOVER OSTEOPATHY [None]
  - INCORRECT DOSE ADMINISTERED [None]
